FAERS Safety Report 11462508 (Version 1)
Quarter: 2015Q3

REPORT INFORMATION
  Report Type: Spontaneous
  Country: US (occurrence: US)
  Receive Date: 20150831
  Receipt Date: 20150831
  Transmission Date: 20151125
  Serious: No
  Sender: FDA-Public Use
  Company Number: US-ELI_LILLY_AND_COMPANY-US201011007292

PATIENT
  Sex: Female

DRUGS (1)
  1. CYMBALTA [Suspect]
     Active Substance: DULOXETINE HYDROCHLORIDE
     Indication: MYALGIA
     Dosage: 40 MG, DAILY (1/D)
     Route: 065
     Dates: start: 200711

REACTIONS (9)
  - Headache [Unknown]
  - Nausea [Unknown]
  - Hyperhidrosis [Unknown]
  - Withdrawal syndrome [Unknown]
  - Nightmare [Unknown]
  - Fatigue [Unknown]
  - Drug ineffective [Unknown]
  - Emotional distress [Unknown]
  - Dizziness [Unknown]
